FAERS Safety Report 7756184-0 (Version None)
Quarter: 2011Q3

REPORT INFORMATION
  Report Type: 
  Country: None (occurrence: None)
  Receive Date: 20110914
  Receipt Date: 20110902
  Transmission Date: 20111222
  Serious: Yes (Hospitalization, Other)
  Sender: FDA-Public Use
  Company Number: CIP11000527

PATIENT
  Age: 90 Year
  Sex: Female

DRUGS (36)
  1. FOSAMAX [Suspect]
     Dosage: 70 MG ONCE WEEKLY, ORAL
     Route: 048
     Dates: start: 20080430
  2. FLONASE [Concomitant]
  3. PRILOSEC [Concomitant]
  4. SOLU-MEDROL [Concomitant]
  5. VOLTAREN [Concomitant]
  6. AVELOX [Concomitant]
  7. MICRO K (POTASSIUM CHLORIDE) [Concomitant]
  8. TUMS /00108001/ (CALCIUM CARBONATE) [Concomitant]
  9. LASIX [Concomitant]
  10. PROTONIX [Concomitant]
  11. Z-PAK (AZITHROMYCIN) PROVENTIL [Concomitant]
  12. DEPO-MEDROL [Concomitant]
  13. LOTENSIN /00498401/ (CAPTOPRIL) [Concomitant]
  14. PYRIDIUM (PHENAZOPYRIDINE HYDROCHLORIDE) [Concomitant]
  15. EVISTA /01303201/ (RALOXIFENE) [Concomitant]
  16. MEDROL [Concomitant]
  17. BEXTRA	/01400702/ (PARECOXIB SODIUM) [Concomitant]
  18. ASCRIPTIN (ACETYLSALICYLIC ACID, ALUMINIUM HYDROXIDE, MAGNESIUM HYDROX [Concomitant]
  19. LISINOPRIL [Concomitant]
  20. PENICILLIN VK /00001801/ (PHENOXYMETHYLPENICILLIN) [Concomitant]
  21. COUMADIN [Concomitant]
  22. ACTONEL [Suspect]
     Indication: OSTEOPOROSIS
     Dosage: 35 MG ONCE WEEKLY, ORAL
     Route: 048
     Dates: start: 20020621, end: 20080101
  23. MULTIVITAMIN /00097801/ (ASCORBIC ACID, CALCIUM PANTOTHENATE, ERGOCALC [Concomitant]
  24. OSCAL/00108001/ (CALCIUM CARBONATE) [Concomitant]
  25. LEVAQUIN [Concomitant]
  26. PEPCID /00706001/ (FAMOTIDINE) [Concomitant]
  27. SEPTRA [Concomitant]
  28. NORVASC [Concomitant]
  29. ASPIRIN [Concomitant]
  30. COMBIVENT [Concomitant]
  31. ZYRTEC-D 12 HOUR [Concomitant]
  32. ROBITUSSIN AC  /00074201/ (CODEINE PHOSPHATE, GUAIFENESIN, PHENIRAMINE [Concomitant]
  33. PREDNISONE [Concomitant]
  34. LOPID [Concomitant]
  35. CIPRO [Concomitant]
  36. FLOVENT (FLUTICASONE PROPIONATE)  /00139501/ (SALBUTAMOL) [Concomitant]

REACTIONS (12)
  - CEREBRAL INFARCTION [None]
  - CYSTITIS INTERSTITIAL [None]
  - COMMINUTED FRACTURE [None]
  - FALL [None]
  - VIITH NERVE PARALYSIS [None]
  - FEMUR FRACTURE [None]
  - PAIN IN EXTREMITY [None]
  - ARTHRALGIA [None]
  - HAEMOGLOBIN DECREASED [None]
  - MOBILITY DECREASED [None]
  - ACTIVITIES OF DAILY LIVING IMPAIRED [None]
  - NERVOUS SYSTEM DISORDER [None]
